FAERS Safety Report 4346390-X (Version None)
Quarter: 2004Q2

REPORT INFORMATION
  Report Type: 
  Country: None (occurrence: None)
  Receive Date: 20040426
  Receipt Date: 20031027
  Transmission Date: 20050107
  Serious: No
  Sender: FDA-Public Use
  Company Number: US-GLAXOSMITHKLINE-A0431739A

PATIENT
  Sex: Female

DRUGS (3)
  1. ZOFRAN [Suspect]
     Indication: PROPHYLAXIS OF NAUSEA AND VOMITING
     Dosage: 4MG PER DAY
     Route: 048
     Dates: start: 20031006
  2. PRILOSEC [Concomitant]
  3. LEVLEN 28 [Concomitant]

REACTIONS (2)
  - FEELING JITTERY [None]
  - TREMOR [None]
